FAERS Safety Report 8306247-6 (Version None)
Quarter: 2012Q2

REPORT INFORMATION
  Report Type: 
  Country: None (occurrence: None)
  Receive Date: 20120423
  Receipt Date: 20120417
  Transmission Date: 20120825
  Serious: No
  Sender: FDA-Public Use
  Company Number: US-PFIZER INC-2012095982

PATIENT
  Sex: Male
  Weight: 83.9 kg

DRUGS (6)
  1. BENICAR [Concomitant]
     Indication: HYPERTENSION
     Dosage: 20 MG,DAILY
  2. TOVIAZ [Suspect]
     Indication: POLLAKIURIA
  3. VALSARTAN [Concomitant]
     Dosage: 160 MG,DAILY
     Route: 048
     Dates: start: 20120101
  4. TOVIAZ [Suspect]
     Indication: BLADDER DISORDER
     Dosage: 4 MG,DAILY
     Route: 048
     Dates: start: 20120401, end: 20120413
  5. ASACOL [Concomitant]
     Indication: COLON CANCER
     Dosage: 800 MG, 3X/DAY
     Route: 048
  6. ASACOL [Concomitant]
     Indication: COLITIS

REACTIONS (2)
  - FATIGUE [None]
  - JOINT SWELLING [None]
